FAERS Safety Report 12751623 (Version 1)
Quarter: 2016Q3

REPORT INFORMATION
  Report Type: Spontaneous
  Country: US (occurrence: US)
  Receive Date: 20160915
  Receipt Date: 20160915
  Transmission Date: 20161109
  Serious: Yes (Hospitalization)
  Sender: FDA-Public Use
  Company Number: US-ASTELLAS-2015US037780

PATIENT
  Sex: Male

DRUGS (1)
  1. XTANDI [Suspect]
     Active Substance: ENZALUTAMIDE
     Indication: HORMONE-REFRACTORY PROSTATE CANCER
     Dosage: 160 MG (4X 40 MG), ONCE DAILY
     Route: 048
     Dates: start: 201507

REACTIONS (6)
  - Abdominal discomfort [Unknown]
  - Insomnia [Unknown]
  - Fatigue [Unknown]
  - Drug dose omission [Unknown]
  - Vomiting [Unknown]
  - Malaise [Unknown]
